FAERS Safety Report 9371901 (Version 1)
Quarter: 2013Q2

REPORT INFORMATION
  Report Type: Report from Study
  Country: US (occurrence: US)
  Receive Date: 20130627
  Receipt Date: 20130627
  Transmission Date: 20140414
  Serious: Yes (Other)
  Sender: FDA-Public Use
  Company Number: US-MYLANLABS-2012S1009754

PATIENT
  Age: 42 Year
  Sex: Female
  Weight: 105.69 kg

DRUGS (19)
  1. CLOZAPINE TABLETS [Suspect]
     Indication: SCHIZOPHRENIA
     Route: 048
     Dates: start: 20090205, end: 20120309
  2. CLOZAPINE TABLETS [Suspect]
     Indication: SCHIZOPHRENIA
     Route: 048
     Dates: start: 20090205, end: 20120309
  3. CLOZAPINE TABLETS [Suspect]
     Indication: SCHIZOAFFECTIVE DISORDER
     Route: 048
     Dates: start: 20090205, end: 20120309
  4. NIACIN [Concomitant]
     Indication: HYPERLIPIDAEMIA
  5. DOCUSATE SODIUM [Concomitant]
  6. TOPIRAMATE [Concomitant]
  7. NEXIUM [Concomitant]
  8. GEMFIBROZIL [Concomitant]
     Indication: HYPERLIPIDAEMIA
  9. OXYBUTYNIN [Concomitant]
  10. LITHIUM [Concomitant]
     Dosage: 300MG AM AND 600MG HS
  11. OLANZAPINE [Concomitant]
  12. WELLBUTRIN [Concomitant]
  13. LEVOTHYROXINE [Concomitant]
  14. LORAZEPAM [Concomitant]
  15. INVEGA SUSTENNA [Concomitant]
     Route: 030
  16. COGENTIN [Concomitant]
  17. SYNTHROID [Concomitant]
  18. DETROL LA [Concomitant]
  19. DEPO-PROVERA [Concomitant]

REACTIONS (2)
  - Granulocytopenia [Recovered/Resolved]
  - Leukopenia [Recovered/Resolved]
